FAERS Safety Report 5762789-9 (Version None)
Quarter: 2008Q2

REPORT INFORMATION
  Report Type: 
  Country: None (occurrence: None)
  Receive Date: 20080528
  Receipt Date: 20080131
  Transmission Date: 20081010
  Serious: Yes (Other)
  Sender: FDA-Public Use
  Company Number: PHEH2008US01428

PATIENT
  Age: 68 Year
  Sex: Male
  Weight: 88.4 kg

DRUGS (7)
  1. TASIGNA [Suspect]
     Indication: CHRONIC MYELOID LEUKAEMIA
     Dosage: 400 MG, BID, ORAL
     Route: 048
     Dates: start: 19090118, end: 20080128
  2. HYDREA [Concomitant]
  3. GABAPENTIN [Concomitant]
  4. LOPRESSOR [Concomitant]
  5. MAXZIDE [Concomitant]
  6. CALCITRIOL [Concomitant]
  7. FLOMAX [Concomitant]

REACTIONS (4)
  - ABASIA [None]
  - ASTHENIA [None]
  - BRADYCARDIA [None]
  - DIZZINESS [None]
